FAERS Safety Report 4988504-4 (Version None)
Quarter: 2006Q2

REPORT INFORMATION
  Report Type: 
  Country: None (occurrence: None)
  Receive Date: 20060502
  Receipt Date: 20050929
  Transmission Date: 20061013
  Serious: No
  Sender: FDA-Public Use
  Company Number: US-GLAXOSMITHKLINE-A0576391A

PATIENT
  Age: 2 Year
  Sex: Male

DRUGS (2)
  1. AMOXIL [Suspect]
     Indication: UPPER RESPIRATORY TRACT INFECTION
     Dosage: 1TSP THREE TIMES PER DAY
     Route: 048
     Dates: start: 20050915, end: 20050921
  2. NO CONCURRENT MEDICATION [Concomitant]

REACTIONS (2)
  - DYSGEUSIA [None]
  - PHARMACEUTICAL PRODUCT COMPLAINT [None]
